FAERS Safety Report 5678847-3 (Version None)
Quarter: 2008Q1

REPORT INFORMATION
  Report Type: 
  Country: None (occurrence: None)
  Receive Date: 20080320
  Receipt Date: 20080219
  Transmission Date: 20080703
  Serious: Yes (Hospitalization, Other)
  Sender: FDA-Public Use
  Company Number: 2008S1002854

PATIENT
  Age: 70 Year
  Sex: Female

DRUGS (1)
  1. BACLOFEN [Suspect]
     Indication: MYALGIA
     Dosage: 5 MG; 3 TIMES A DAY ORAL, 5 MG; ORAL; 3 TIMES A DAY
     Route: 048

REACTIONS (9)
  - BLOOD PRESSURE INCREASED [None]
  - BLOOD SODIUM INCREASED [None]
  - CEREBRAL ATROPHY [None]
  - CONFUSIONAL STATE [None]
  - DRUG TOXICITY [None]
  - HAEMOGLOBIN DECREASED [None]
  - LEUKOARAIOSIS [None]
  - OVERDOSE [None]
  - SOMNOLENCE [None]
